FAERS Safety Report 23308075 (Version 1)
Quarter: 2023Q4

REPORT INFORMATION
  Report Type: Report from Study
  Country: DE (occurrence: DE)
  Receive Date: 20231218
  Receipt Date: 20231218
  Transmission Date: 20240110
  Serious: Yes (Hospitalization)
  Sender: FDA-Public Use
  Company Number: DE-GLAXOSMITHKLINE-DE2023GSK174137

PATIENT

DRUGS (1)
  1. MOMELOTINIB [Suspect]
     Active Substance: MOMELOTINIB
     Indication: Primary myelofibrosis
     Dosage: UNK
     Route: 048
     Dates: start: 20230915

REACTIONS (1)
  - Hypertension [Recovering/Resolving]

NARRATIVE: CASE EVENT DATE: 20231125
